FAERS Safety Report 17351644 (Version 2)
Quarter: 2024Q3

REPORT INFORMATION
  Report Type: Spontaneous
  Country: NO (occurrence: NO)
  Receive Date: 20200130
  Receipt Date: 20240913
  Transmission Date: 20241017
  Serious: Yes (Death)
  Sender: MYLAN
  Company Number: NO-PFIZER INC-2019511120

PATIENT
  Sex: Male

DRUGS (12)
  1. LYRICA [Suspect]
     Active Substance: PREGABALIN
     Indication: Pain
     Dosage: UNK
     Route: 065
  2. LIDOCAINE [Suspect]
     Active Substance: LIDOCAINE
     Indication: Pain
     Dosage: 1 DOSAGE FORM, PRN (AS NEEDED)
     Route: 065
     Dates: start: 20101118
  3. LIDOCAINE [Suspect]
     Active Substance: LIDOCAINE
     Dosage: 1 DOSAGE FORM, PRN, INCREASED DOSE, AS NEEDED
     Route: 065
     Dates: start: 201012
  4. MIDAZOLAM [Suspect]
     Active Substance: MIDAZOLAM
     Indication: Pain
     Dosage: 1 DOSAGE FORM, PRN, DOSE INCREASING, AS NEEDED
     Route: 065
     Dates: start: 201101
  5. DIAZEPAM [Suspect]
     Active Substance: DIAZEPAM
     Indication: Stress
     Dosage: UNK
     Route: 065
  6. KETAMINE HYDROCHLORIDE [Suspect]
     Active Substance: KETAMINE HYDROCHLORIDE
     Indication: Pain
     Dosage: 1 DOSAGE FORM, PRN (AS NEEDED)
     Route: 065
     Dates: start: 20101118
  7. KETAMINE HYDROCHLORIDE [Suspect]
     Active Substance: KETAMINE HYDROCHLORIDE
     Dosage: 1 DOSAGE FORM, PRN, INCREASED DOSE AS NEEDED
     Route: 065
     Dates: start: 201012
  8. METHADONE [Suspect]
     Active Substance: METHADONE HYDROCHLORIDE
     Indication: Product used for unknown indication
     Dosage: UNK
     Route: 065
  9. KETOBEMIDONE HYDROCHLORIDE [Suspect]
     Active Substance: KETOBEMIDONE HYDROCHLORIDE
     Indication: Pain
     Dosage: 1 DOSAGE FORM, PRN (AS NEEDED)
     Route: 065
     Dates: start: 2011
  10. DIAZEPAM [Suspect]
     Active Substance: DIAZEPAM
     Indication: Pain
     Dosage: 1 DOSAGE FORM, PRN, INCREASED DOSE, AS NEEDED
     Route: 065
     Dates: start: 20101118
  11. DIAZEPAM [Suspect]
     Active Substance: DIAZEPAM
     Dosage: 1 DOSAGE FORM, PRN, INCREASED DOSE, AS NEEDED
     Route: 065
     Dates: start: 201012
  12. MORPHINE [Suspect]
     Active Substance: MORPHINE
     Indication: Pain
     Dosage: UNK
     Route: 065

REACTIONS (10)
  - Toxicity to various agents [Fatal]
  - Drug dependence [Fatal]
  - Decreased appetite [Fatal]
  - Loss of personal independence in daily activities [Fatal]
  - Somatic symptom disorder [Fatal]
  - Weight decreased [Fatal]
  - Sleep disorder [Fatal]
  - Drug ineffective [Fatal]
  - Product use in unapproved indication [Fatal]
  - Off label use [Fatal]

NARRATIVE: CASE EVENT DATE: 20101118
